FAERS Safety Report 6418118-0 (Version None)
Quarter: 2009Q4

REPORT INFORMATION
  Report Type: 
  Country: None (occurrence: None)
  Receive Date: 20091028
  Receipt Date: 20091023
  Transmission Date: 20100525
  Serious: Yes (Hospitalization)
  Sender: FDA-Public Use
  Company Number: JP-AVENTIS-200912182JP

PATIENT
  Age: 73 Year
  Sex: Female
  Weight: 44 kg

DRUGS (2)
  1. CLEXANE [Suspect]
     Route: 058
     Dates: start: 20081228, end: 20090106
  2. LOXOPROFEN [Concomitant]
     Route: 048
     Dates: start: 20081227

REACTIONS (2)
  - IMPAIRED HEALING [None]
  - POST PROCEDURAL HAEMORRHAGE [None]
